FAERS Safety Report 9454692 (Version 1)
Quarter: 2013Q3

REPORT INFORMATION
  Report Type: Spontaneous
  Country: US (occurrence: None)
  Receive Date: 20130808
  Receipt Date: 20130808
  Transmission Date: 20140515
  Serious: Yes (Life-Threatening, Hospitalization)
  Sender: FDA-Public Use
  Company Number: 2013/159

PATIENT
  Sex: 0

DRUGS (2)
  1. AMLODIPINE [Suspect]
  2. LISINOPRIL [Suspect]

REACTIONS (11)
  - Intentional overdose [None]
  - Hypotension [None]
  - Depressed level of consciousness [None]
  - Suicide attempt [None]
  - Tachycardia [None]
  - Respiratory failure [None]
  - Hypokalaemia [None]
  - Hypophosphataemia [None]
  - Renal failure [None]
  - Bacteraemia [None]
  - Pericardial effusion [None]
